FAERS Safety Report 18187137 (Version 1)
Quarter: 2020Q3

REPORT INFORMATION
  Report Type: Spontaneous
  Country: BR (occurrence: BR)
  Receive Date: 20200824
  Receipt Date: 20200824
  Transmission Date: 20201103
  Serious: Yes (Death, Other)
  Sender: FDA-Public Use
  Company Number: BR-ASTELLAS-2020US028376

PATIENT
  Age: 88 Year
  Sex: Male

DRUGS (1)
  1. XTANDI [Suspect]
     Active Substance: ENZALUTAMIDE
     Indication: PROSTATE CANCER
     Dosage: 160 MG, ONCE DAILY (4 CAPSULES/DAY (MORNING))
     Route: 048
     Dates: start: 201905, end: 20200710

REACTIONS (3)
  - Post procedural complication [Unknown]
  - Malignant neoplasm progression [Unknown]
  - Death [Fatal]

NARRATIVE: CASE EVENT DATE: 20200724
